FAERS Safety Report 7332213-3 (Version None)
Quarter: 2011Q1

REPORT INFORMATION
  Report Type: 
  Country: None (occurrence: None)
  Receive Date: 20110228
  Receipt Date: 20110228
  Transmission Date: 20110831
  Serious: Yes (Disabling)
  Sender: FDA-Public Use
  Company Number: None

PATIENT
  Sex: Female
  Weight: 65.318 kg

DRUGS (1)
  1. BONIVA [Suspect]
     Indication: BONE DENSITY ABNORMAL
     Dosage: 1 TABLET PER MONTH MOUTH
     Route: 048
     Dates: start: 20061201, end: 20100601

REACTIONS (4)
  - BONE DENSITY DECREASED [None]
  - INFECTION [None]
  - SPEECH DISORDER [None]
  - GINGIVAL DISORDER [None]
